FAERS Safety Report 6489754-0 (Version None)
Quarter: 2009Q4

REPORT INFORMATION
  Report Type: 
  Country: None (occurrence: None)
  Receive Date: 20091207
  Receipt Date: 20091123
  Transmission Date: 20100525
  Serious: Yes (Hospitalization, Other)
  Sender: FDA-Public Use
  Company Number: 2009AC000365

PATIENT
  Age: 65 Year
  Sex: Female

DRUGS (13)
  1. DIGOXIN [Suspect]
     Dosage: 0.25 MG; QD; PO
     Route: 048
     Dates: start: 20080501
  2. SYNTHROID [Concomitant]
  3. MAGNESIUM [Concomitant]
  4. VITAMIN E [Concomitant]
  5. POTASSIUM [Concomitant]
  6. ASCORBIC ACID [Concomitant]
  7. ZINC [Concomitant]
  8. ATENOLOL [Concomitant]
  9. LEVOTHROXIN [Concomitant]
  10. PREDISONE DOSEPAK [Concomitant]
  11. ZYRTEC [Concomitant]
  12. ASPIRIN [Concomitant]
  13. LEVOTHYROXINE SODIUM [Concomitant]

REACTIONS (22)
  - ANGIOEDEMA [None]
  - ANHEDONIA [None]
  - ANXIETY [None]
  - ATRIAL FIBRILLATION [None]
  - AUTOIMMUNE THYROIDITIS [None]
  - BUNDLE BRANCH BLOCK LEFT [None]
  - CARDIOACTIVE DRUG LEVEL INCREASED [None]
  - ECONOMIC PROBLEM [None]
  - HEADACHE [None]
  - HEART INJURY [None]
  - HYPERTENSION [None]
  - HYPOTHYROIDISM [None]
  - INCORRECT DOSE ADMINISTERED [None]
  - MULTIPLE INJURIES [None]
  - NODAL ARRHYTHMIA [None]
  - PAIN [None]
  - RHINITIS ALLERGIC [None]
  - SINOBRONCHITIS [None]
  - SURGERY [None]
  - TINNITUS [None]
  - UNEVALUABLE EVENT [None]
  - URTICARIA [None]
